FAERS Safety Report 10056987 (Version 2)
Quarter: 2014Q2

REPORT INFORMATION
  Report Type: Spontaneous
  Country: IT (occurrence: IT)
  Receive Date: 20140403
  Receipt Date: 20140421
  Transmission Date: 20141212
  Serious: Yes (Other)
  Sender: FDA-Public Use
  Company Number: IT-TEVA-472703ISR

PATIENT
  Age: 84 Year
  Sex: Female

DRUGS (2)
  1. LORAZEPAM [Suspect]
     Indication: ANXIETY
     Route: 048
     Dates: start: 20140320, end: 20140320
  2. CITALOPRAM [Suspect]
     Indication: DEPRESSION
     Route: 048
     Dates: start: 20140320, end: 20140320

REACTIONS (3)
  - Confusional state [Recovered/Resolved]
  - Incorrect dose administered [Unknown]
  - Intentional product misuse [Unknown]
